FAERS Safety Report 4689585-8 (Version None)
Quarter: 2005Q2

REPORT INFORMATION
  Report Type: 
  Country: None (occurrence: None)
  Receive Date: 20050613
  Receipt Date: 20050613
  Transmission Date: 20051028
  Serious: Yes (Disabling)
  Sender: FDA-Public Use
  Company Number: None

PATIENT
  Age: 67 Year
  Sex: Male
  Weight: 83.9154 kg

DRUGS (2)
  1. VIAGRA [Suspect]
     Indication: ERECTILE DYSFUNCTION
     Dosage: OCCASIONALLY
  2. ASPIRIN [Concomitant]

REACTIONS (2)
  - BLINDNESS [None]
  - OPTIC ISCHAEMIC NEUROPATHY [None]
